FAERS Safety Report 5638105-X (Version None)
Quarter: 2008Q1

REPORT INFORMATION
  Report Type: 
  Country: None (occurrence: None)
  Receive Date: 20080221
  Receipt Date: 20080211
  Transmission Date: 20080703
  Serious: Yes (Other)
  Sender: FDA-Public Use
  Company Number: 2008RL000053

PATIENT
  Age: 74 Year
  Sex: Male

DRUGS (5)
  1. DYNACIRC [Suspect]
     Indication: BLOOD PRESSURE
     Dosage: 10 MG; QD; 10 MG; QD; 20 MG; QD
     Dates: end: 20080209
  2. DYNACIRC [Suspect]
     Indication: BLOOD PRESSURE
     Dosage: 10 MG; QD; 10 MG; QD; 20 MG; QD
     Dates: start: 20080210, end: 20080210
  3. DYNACIRC [Suspect]
     Indication: BLOOD PRESSURE
     Dosage: 10 MG; QD; 10 MG; QD; 20 MG; QD
     Dates: start: 20080211
  4. VITAMINS /90003601/ [Concomitant]
  5. HYDROCHLOROTHIAZIDE [Concomitant]

REACTIONS (6)
  - BLOOD CREATININE INCREASED [None]
  - BLOOD PRESSURE INCREASED [None]
  - INCORRECT DOSE ADMINISTERED [None]
  - OEDEMA PERIPHERAL [None]
  - THERAPEUTIC RESPONSE DECREASED [None]
  - TINNITUS [None]
